FAERS Safety Report 6428554-4 (Version None)
Quarter: 2009Q4

REPORT INFORMATION
  Report Type: 
  Country: None (occurrence: None)
  Receive Date: 20091105
  Receipt Date: 20091022
  Transmission Date: 20100525
  Serious: Yes (Hospitalization)
  Sender: FDA-Public Use
  Company Number: NL-GENENTECH-285385

PATIENT
  Sex: Male

DRUGS (3)
  1. BEVACIZUMAB [Suspect]
     Indication: COLORECTAL CANCER
     Dosage: 650 MG, UNK
     Route: 065
     Dates: start: 20080925
  2. CAPECITABINE [Suspect]
     Indication: COLORECTAL CANCER
     Dosage: 1020 MG, BID
     Route: 065
     Dates: start: 20080925
  3. PANTOPRAZOLE SODIUM [Concomitant]
     Indication: DRUG USE FOR UNKNOWN INDICATION

REACTIONS (1)
  - CAMPYLOBACTER GASTROENTERITIS [None]
